FAERS Safety Report 4947595-7 (Version None)
Quarter: 2006Q1

REPORT INFORMATION
  Report Type: 
  Country: None (occurrence: None)
  Receive Date: 20060314
  Receipt Date: 20060303
  Transmission Date: 20060701
  Serious: Yes (Death, Other)
  Sender: FDA-Public Use
  Company Number: 060306-0000199

PATIENT
  Age: 54 Year
  Sex: Female

DRUGS (2)
  1. PENTOBARBITAL SODIUM [Suspect]
     Dosage: PARN
  2. DIAZEPAM [Suspect]
     Dosage: PARN

REACTIONS (3)
  - CARDIO-RESPIRATORY ARREST [None]
  - COMPLETED SUICIDE [None]
  - LOSS OF CONSCIOUSNESS [None]
